FAERS Safety Report 8179964-9 (Version None)
Quarter: 2012Q1

REPORT INFORMATION
  Report Type: 
  Country: None (occurrence: None)
  Receive Date: 20120302
  Receipt Date: 20120222
  Transmission Date: 20120608
  Serious: Yes (Hospitalization, Other)
  Sender: FDA-Public Use
  Company Number: US-JNJFOC-20120211412

PATIENT
  Age: 56 Year
  Sex: Female

DRUGS (1)
  1. TOPAMAX [Suspect]
     Indication: MIGRAINE PROPHYLAXIS
     Route: 048

REACTIONS (8)
  - INTRAOCULAR PRESSURE INCREASED [None]
  - WEIGHT DECREASED [None]
  - CEREBROVASCULAR ACCIDENT [None]
  - NEURALGIA [None]
  - WITHDRAWAL SYNDROME [None]
  - DEPRESSION [None]
  - ALOPECIA [None]
  - TOOTH LOSS [None]
